FAERS Safety Report 20077098 (Version 1)
Quarter: 2021Q4

REPORT INFORMATION
  Report Type: Spontaneous
  Country: US (occurrence: None)
  Receive Date: 20211116
  Receipt Date: 20211116
  Transmission Date: 20220303
  Serious: Yes (Death, Hospitalization)
  Sender: FDA-Public Use
  Company Number: None

PATIENT
  Age: 5 Year
  Sex: Male
  Weight: 16.8 kg

DRUGS (3)
  1. DOXORUBICIN HYDROCHLORIDE [Suspect]
     Active Substance: DOXORUBICIN HYDROCHLORIDE
     Dates: end: 20211026
  2. DEXAMETHASONE [Suspect]
     Active Substance: DEXAMETHASONE
  3. VINCRISTINE SULFATE [Suspect]
     Active Substance: VINCRISTINE SULFATE
     Dates: end: 20211026

REACTIONS (7)
  - Hyponatraemia [None]
  - Nausea [None]
  - Seizure [None]
  - Condition aggravated [None]
  - Clostridium test positive [None]
  - Colitis [None]
  - Abdominal compartment syndrome [None]

NARRATIVE: CASE EVENT DATE: 20211031
